FAERS Safety Report 4744260-6 (Version None)
Quarter: 2005Q3

REPORT INFORMATION
  Report Type: 
  Country: None (occurrence: None)
  Receive Date: 20050809
  Receipt Date: 20050803
  Transmission Date: 20060218
  Serious: Yes (Life-Threatening, Hospitalization)
  Sender: FDA-Public Use
  Company Number: 2005JP001326

PATIENT
  Age: 57 Year
  Sex: Male
  Weight: 52 kg

DRUGS (8)
  1. PROGRAF [Suspect]
     Indication: RENAL TRANSPLANT
     Dosage: SEE IMAGE
     Route: 048
     Dates: start: 20040510
  2. PROGRAF [Suspect]
     Indication: RENAL TRANSPLANT
     Dosage: SEE IMAGE
     Route: 048
     Dates: start: 20050626
  3. PREDNISOLONE [Suspect]
     Indication: RENAL TRANSPLANT
     Dosage: 10.00 MG, TID, ORAL
     Route: 048
     Dates: start: 20040510
  4. MYCOPHENOLATE MOFETIL (MYCOPHENOLATE MOFETIL) PER ORAL NOS [Suspect]
     Indication: RENAL TRANSPLANT
     Dosage: 1000.00 MG, BID, ORAL
     Route: 048
     Dates: start: 20040510
  5. DIOVANE (VALSARTAN) PER ORAL NOS [Concomitant]
  6. THYRADIN (THYROID) PER ORAL NOS [Concomitant]
  7. AMLODIN (AMLODIPINE BESILATE) PER ORAL NOS [Concomitant]
  8. GASTER PER ORAL NOS [Concomitant]

REACTIONS (2)
  - CHOLECYSTITIS INFECTIVE [None]
  - CYTOMEGALOVIRUS INFECTION [None]
